FAERS Safety Report 5409400-4 (Version None)
Quarter: 2007Q3

REPORT INFORMATION
  Report Type: 
  Country: None (occurrence: None)
  Receive Date: 20070808
  Receipt Date: 20070808
  Transmission Date: 20080115
  Serious: Yes (Hospitalization, Disabling)
  Sender: FDA-Public Use
  Company Number: None

PATIENT
  Age: 87 Year
  Sex: Female
  Weight: 113 kg

DRUGS (13)
  1. METFORMIN HCL [Suspect]
     Indication: DIABETES MELLITUS
     Dosage: 1000MG DAILY PO
     Route: 048
  2. DEPAKOTE ER [Concomitant]
  3. VITAMIN B-12 [Concomitant]
  4. AVANDIA [Suspect]
  5. LISINOPRIL [Concomitant]
  6. AGGRENOX [Concomitant]
  7. HYDROCHLOROTHIAZIDE [Concomitant]
  8. FERROUS GLUCONATE [Concomitant]
  9. LIPITOR [Concomitant]
  10. NEXIUM [Concomitant]
  11. DETROL LA [Concomitant]
  12. LANTUS [Concomitant]
  13. SYNTHROID [Concomitant]

REACTIONS (14)
  - ABDOMINAL HERNIA [None]
  - ABDOMINAL PAIN [None]
  - CONJUNCTIVITIS [None]
  - CONSTIPATION [None]
  - GASTROINTESTINAL SOUNDS ABNORMAL [None]
  - LACTIC ACIDOSIS [None]
  - METABOLIC ACIDOSIS [None]
  - NAUSEA [None]
  - PALLOR [None]
  - PERIORBITAL OEDEMA [None]
  - PERIPHERAL VASCULAR DISORDER [None]
  - PLEURAL EFFUSION [None]
  - RENAL FAILURE ACUTE [None]
  - VOMITING [None]
